FAERS Safety Report 7923019-2 (Version None)
Quarter: 2011Q4

REPORT INFORMATION
  Report Type: 
  Country: None (occurrence: None)
  Receive Date: 20111117
  Receipt Date: 20110127
  Transmission Date: 20120403
  Serious: No
  Sender: FDA-Public Use
  Company Number: US-AMGEN-USASP2011005188

PATIENT
  Age: 70 Year
  Weight: 43.537 kg

DRUGS (7)
  1. MULTI-VITAMINS [Concomitant]
  2. PAROXETINE HCL [Concomitant]
     Dosage: 10 MG, UNK
  3. METOPROLOL TARTRATE [Concomitant]
  4. ENBREL [Suspect]
     Indication: PRODUCT USED FOR UNKNOWN INDICATION
     Dosage: 50 MG, UNK
  5. SODIUM CHLORIDE [Concomitant]
     Route: 045
  6. XANAX [Concomitant]
     Dosage: 0.25 MG, UNK
  7. PROCARDIA [Concomitant]
     Dosage: 10 MG, UNK

REACTIONS (3)
  - WEIGHT DECREASED [None]
  - SEASONAL AFFECTIVE DISORDER [None]
  - DRUG DOSE OMISSION [None]
